FAERS Safety Report 25352287 (Version 1)
Quarter: 2025Q2

REPORT INFORMATION
  Report Type: Spontaneous
  Country: US (occurrence: US)
  Receive Date: 20250523
  Receipt Date: 20250523
  Transmission Date: 20250717
  Serious: Yes (Hospitalization, Other)
  Sender: Vantive US Healthcare
  Company Number: US-VANTIVE-2025VAN002395

PATIENT

DRUGS (1)
  1. EXTRANEAL [Suspect]
     Active Substance: CALCIUM CHLORIDE\ICODEXTRIN\MAGNESIUM CHLORIDE\SODIUM CHLORIDE\SODIUM LACTATE
     Route: 033

REACTIONS (6)
  - Peritonitis [Unknown]
  - Peritoneal cloudy effluent [Unknown]
  - Pain [Unknown]
  - Discomfort [Unknown]
  - Abdominal distension [Unknown]
  - Chills [Unknown]

NARRATIVE: CASE EVENT DATE: 20250513
